FAERS Safety Report 8507042-5 (Version None)
Quarter: 2012Q3

REPORT INFORMATION
  Report Type: 
  Country: None (occurrence: None)
  Receive Date: 20120703
  Receipt Date: 20120628
  Transmission Date: 20120928
  Serious: Yes (Hospitalization, Other)
  Sender: FDA-Public Use
  Company Number: 2010SP004877

PATIENT
  Age: 24 Year
  Sex: Female
  Weight: 102.0593 kg

DRUGS (1)
  1. NUVARING [Suspect]
     Indication: CONTRACEPTION
     Dates: start: 20071010, end: 20080802

REACTIONS (43)
  - PAPILLOEDEMA [None]
  - MENOMETRORRHAGIA [None]
  - BACK PAIN [None]
  - MUSCLE SPASMS [None]
  - HAEMOPTYSIS [None]
  - PLEURAL EFFUSION [None]
  - ASTHMA [None]
  - MICROCYTIC ANAEMIA [None]
  - PLEURAL FIBROSIS [None]
  - PULMONARY OEDEMA [None]
  - MUSCULOSKELETAL PAIN [None]
  - URINARY TRACT INFECTION [None]
  - OBESITY [None]
  - GENITOURINARY TRACT INFECTION [None]
  - VAGINITIS BACTERIAL [None]
  - PREGNANCY [None]
  - PULMONARY EMBOLISM [None]
  - MIGRAINE [None]
  - LIMB INJURY [None]
  - VULVOVAGINAL MYCOTIC INFECTION [None]
  - NAUSEA [None]
  - PAIN [None]
  - BREAST TENDERNESS [None]
  - PAIN IN EXTREMITY [None]
  - TINNITUS [None]
  - ATELECTASIS [None]
  - LUNG INFILTRATION [None]
  - HILAR LYMPHADENOPATHY [None]
  - COUGH [None]
  - LUNG CONSOLIDATION [None]
  - SLEEP APNOEA SYNDROME [None]
  - ECONOMIC PROBLEM [None]
  - INADEQUATE ANALGESIA [None]
  - INTERNATIONAL NORMALISED RATIO DECREASED [None]
  - OVARIAN CYST [None]
  - CHILLS [None]
  - DEEP VEIN THROMBOSIS [None]
  - VOMITING [None]
  - FALL [None]
  - CYSTITIS [None]
  - GASTROINTESTINAL INFECTION [None]
  - MATERNAL EXPOSURE BEFORE PREGNANCY [None]
  - TREATMENT NONCOMPLIANCE [None]
